FAERS Safety Report 10419418 (Version 1)
Quarter: 2014Q3

REPORT INFORMATION
  Report Type: Spontaneous
  Country: PT (occurrence: None)
  Receive Date: 20140827
  Receipt Date: 20140827
  Transmission Date: 20150326
  Serious: Yes (Life-Threatening, Other)
  Sender: FDA-Public Use
  Company Number: 2496713

PATIENT
  Age: 31 Year
  Sex: Female
  Weight: 100 kg

DRUGS (3)
  1. NACL [Concomitant]
     Active Substance: SODIUM CHLORIDE
  2. DOCETAXEL [Suspect]
     Active Substance: DOCETAXEL
     Indication: INVASIVE DUCTAL BREAST CARCINOMA
     Dosage: 200 MG MILLIGRAM(S), 1 DAY, INTRAVENOUS (NOT OTHERWISE SPECIFIED)?
     Route: 042
     Dates: start: 20140613
  3. TRASTUZUMAB [Concomitant]
     Active Substance: TRASTUZUMAB

REACTIONS (7)
  - Skin exfoliation [None]
  - Pharyngeal oedema [None]
  - Nasal inflammation [None]
  - Pain [None]
  - Tongue oedema [None]
  - Stomatitis [None]
  - Aphthous stomatitis [None]

NARRATIVE: CASE EVENT DATE: 20140619
